FAERS Safety Report 10217398 (Version 2)
Quarter: 2014Q2

REPORT INFORMATION
  Report Type: Spontaneous
  Country: BR (occurrence: BR)
  Receive Date: 20140604
  Receipt Date: 20140629
  Transmission Date: 20141212
  Serious: Yes (Other)
  Sender: FDA-Public Use
  Company Number: BR-PFIZER INC-2014149889

PATIENT
  Sex: Female

DRUGS (1)
  1. LYRICA [Suspect]
     Indication: PAIN
     Dosage: EVERY 12 HOURS
     Route: 048

REACTIONS (4)
  - Spinal disorder [Unknown]
  - Pain [Recovering/Resolving]
  - Intentional product misuse [Unknown]
  - Somnolence [Unknown]
